FAERS Safety Report 24265579 (Version 1)
Quarter: 2024Q3

REPORT INFORMATION
  Report Type: Spontaneous
  Country: US (occurrence: US)
  Receive Date: 20240829
  Receipt Date: 20240829
  Transmission Date: 20241017
  Serious: Yes (Other)
  Sender: BRISTOL MYERS SQUIBB
  Company Number: US-BRISTOL-MYERS SQUIBB COMPANY-2024-133332

PATIENT
  Age: 82 Year
  Sex: Male

DRUGS (1)
  1. LENALIDOMIDE [Suspect]
     Active Substance: LENALIDOMIDE
     Indication: Myelodysplastic syndrome with multilineage dysplasia
     Dosage: FREQUENCY 28 (UNSPECIFIED)
     Route: 048
     Dates: start: 20230711

REACTIONS (4)
  - Cystitis [Unknown]
  - Pneumonia [Unknown]
  - Nerve injury [Unknown]
  - Wound [Unknown]
